FAERS Safety Report 5911494-4 (Version None)
Quarter: 2008Q4

REPORT INFORMATION
  Report Type: 
  Country: None (occurrence: None)
  Receive Date: 20081007
  Receipt Date: 20081003
  Transmission Date: 20090506
  Serious: Yes (Death, Hospitalization)
  Sender: FDA-Public Use
  Company Number: BE-MERCK-0810BEL00003

PATIENT
  Age: 65 Year
  Sex: Female
  Weight: 61 kg

DRUGS (3)
  1. CANCIDAS [Suspect]
     Indication: EVIDENCE BASED TREATMENT
     Route: 041
     Dates: start: 20080625, end: 20080625
  2. CANCIDAS [Suspect]
     Route: 041
     Dates: start: 20080626, end: 20080703
  3. AMPICILLIN [Concomitant]
     Route: 065
     Dates: start: 20080625, end: 20080701

REACTIONS (2)
  - BACTERIAL INFECTION [None]
  - DRUG INEFFECTIVE [None]
